FAERS Safety Report 4705987-5 (Version None)
Quarter: 2005Q2

REPORT INFORMATION
  Report Type: 
  Country: None (occurrence: None)
  Receive Date: 20050629
  Receipt Date: 20050525
  Transmission Date: 20051028
  Serious: Yes (Hospitalization)
  Sender: FDA-Public Use
  Company Number: 05P-163-0301611-00

PATIENT
  Age: 79 Year
  Sex: Male
  Weight: 85.2762 kg

DRUGS (7)
  1. HUMIRA [Suspect]
     Indication: RHEUMATOID ARTHRITIS
     Dosage: 40 MG, 1 IN 1 WK, SUBCUTANEOUS
     Route: 058
     Dates: start: 20040408, end: 20050515
  2. PREDNISONE TAB [Concomitant]
  3. GLIBENCLAMIDE [Concomitant]
  4. FLOMAX [Concomitant]
  5. FUROSEMIDE [Concomitant]
  6. QUINAPRIL HCL [Concomitant]
  7. METFORMIN [Concomitant]

REACTIONS (5)
  - ARTHRITIS [None]
  - CONDITION AGGRAVATED [None]
  - COUGH [None]
  - HEADACHE [None]
  - PNEUMONIA [None]
